FAERS Safety Report 6880568-6 (Version None)
Quarter: 2010Q3

REPORT INFORMATION
  Report Type: 
  Country: None (occurrence: None)
  Receive Date: 20100728
  Receipt Date: 20100719
  Transmission Date: 20110219
  Serious: Yes (Death, Hospitalization)
  Sender: FDA-Public Use
  Company Number: FR-AMGEN-QUU418892

PATIENT
  Sex: Male

DRUGS (11)
  1. ENBREL [Suspect]
     Indication: RHEUMATOID ARTHRITIS
     Route: 058
     Dates: start: 20070201
  2. TENORMIN [Suspect]
     Indication: PRODUCT USED FOR UNKNOWN INDICATION
     Dosage: UNKNOWN
  3. NEO-MERCAZOLE TAB [Suspect]
     Indication: HYPERTHYROIDISM
     Dosage: UNKNOWN
     Route: 048
  4. METFORMIN HCL [Suspect]
     Indication: TYPE 2 DIABETES MELLITUS
     Dosage: UNKNOWN
     Route: 048
  5. JANUVIA [Concomitant]
     Indication: TYPE 2 DIABETES MELLITUS
     Dosage: UNKNOWN
     Route: 048
  6. PANTESTON [Concomitant]
     Indication: HYPOGONADISM MALE
     Dosage: UNKNOWN
     Route: 048
  7. METHOTREXATE [Concomitant]
     Indication: RHEUMATOID ARTHRITIS
     Dosage: UNKNOWN
  8. GLUCOPHAGE [Concomitant]
     Dosage: UNKNOWN
     Route: 048
  9. DI-ANTALVIC [Concomitant]
     Dosage: UNKNOWN
     Route: 048
  10. ARTHROTEC [Concomitant]
     Dosage: UNKNOWN
  11. ACTONEL [Concomitant]
     Dosage: UNKNOWN
     Route: 048

REACTIONS (13)
  - ANURIA [None]
  - CARDIOVASCULAR INSUFFICIENCY [None]
  - CYTOLYTIC HEPATITIS [None]
  - DYSPNOEA [None]
  - GENERAL PHYSICAL HEALTH DETERIORATION [None]
  - HEPATIC ENCEPHALOPATHY [None]
  - HEPATIC FAILURE [None]
  - HYPOTENSION [None]
  - HYPOVOLAEMIA [None]
  - OVERDOSE [None]
  - RENAL FAILURE ACUTE [None]
  - RESPIRATORY DEPRESSION [None]
  - SECONDARY ADRENOCORTICAL INSUFFICIENCY [None]
